FAERS Safety Report 4616810-1 (Version None)
Quarter: 2005Q2

REPORT INFORMATION
  Report Type: 
  Country: None (occurrence: None)
  Receive Date: 20050311
  Receipt Date: 20050111
  Transmission Date: 20051028
  Serious: Yes (Hospitalization)
  Sender: FDA-Public Use
  Company Number: 2004-00155

PATIENT
  Age: 71 Year
  Sex: Female
  Weight: 46 kg

DRUGS (8)
  1. VELCADE [Suspect]
     Indication: MULTIPLE MYELOMA
     Dosage: 2.00 MG, IV BOLUS
     Route: 040
     Dates: start: 20040329, end: 20040826
  2. ZOFRAN [Concomitant]
  3. SODIUM CHLORIDE [Concomitant]
  4. DECADRON [Concomitant]
  5. PROCRIT [Concomitant]
  6. ZOMETA [Concomitant]
  7. POTASSIUM CHLORIDE [Concomitant]
  8. MAGNESIUM (MAGNESIUM) [Concomitant]

REACTIONS (9)
  - ANAEMIA [None]
  - ASTHENIA [None]
  - BONE PAIN [None]
  - CONSTIPATION [None]
  - DIARRHOEA [None]
  - GASTROINTESTINAL HAEMORRHAGE [None]
  - NAUSEA [None]
  - PRODUCTIVE COUGH [None]
  - THROMBOCYTOPENIA [None]
